FAERS Safety Report 20579402 (Version 2)
Quarter: 2025Q2

REPORT INFORMATION
  Report Type: Report from Study
  Country: IT (occurrence: IT)
  Receive Date: 20220310
  Receipt Date: 20250406
  Transmission Date: 20250717
  Serious: Yes (Hospitalization, Other)
  Sender: TAKEDA
  Company Number: IT-TAKEDA-2022TUS015037

PATIENT
  Age: 26 Year
  Sex: Male

DRUGS (3)
  1. RURIOCTOCOG ALFA PEGOL [Suspect]
     Active Substance: RURIOCTOCOG ALFA PEGOL
     Indication: Haemophilia
     Dosage: 3000 INTERNATIONAL UNIT, 2/WEEK
  2. RURIOCTOCOG ALFA PEGOL [Suspect]
     Active Substance: RURIOCTOCOG ALFA PEGOL
     Dosage: 3000 INTERNATIONAL UNIT, QD
  3. RURIOCTOCOG ALFA PEGOL [Suspect]
     Active Substance: RURIOCTOCOG ALFA PEGOL

REACTIONS (3)
  - Haemarthrosis [Not Recovered/Not Resolved]
  - Arthropathy [Recovering/Resolving]
  - Injury [Not Recovered/Not Resolved]

NARRATIVE: CASE EVENT DATE: 20220226
